FAERS Safety Report 5774810-2 (Version None)
Quarter: 2008Q2

REPORT INFORMATION
  Report Type: 
  Country: None (occurrence: None)
  Receive Date: 20080617
  Receipt Date: 20080610
  Transmission Date: 20081010
  Serious: Yes (Other)
  Sender: FDA-Public Use
  Company Number: CA-ALLERGAN-0807035US

PATIENT
  Sex: Female
  Weight: 75 kg

DRUGS (2)
  1. BOTOX [Suspect]
     Indication: DRUG USE FOR UNKNOWN INDICATION
  2. ESTROGENIC SUBSTANCE [Concomitant]
     Indication: DRUG USE FOR UNKNOWN INDICATION

REACTIONS (7)
  - DRY MOUTH [None]
  - EYE BURNS [None]
  - EYELID OEDEMA [None]
  - PERIORBITAL OEDEMA [None]
  - PHOTOSENSITIVITY REACTION [None]
  - TINNITUS [None]
  - VISUAL DISTURBANCE [None]
